FAERS Safety Report 9760332 (Version 2)
Quarter: 2015Q3

REPORT INFORMATION
  Report Type: Spontaneous
  Country: US (occurrence: US)
  Receive Date: 20131216
  Receipt Date: 20150806
  Transmission Date: 20151125
  Serious: No
  Sender: FDA-Public Use
  Company Number: US-GILEAD-2010-0029232

PATIENT
  Age: 64 Year
  Sex: Male
  Weight: 61.23 kg

DRUGS (11)
  1. PLAQUENIL [Concomitant]
     Active Substance: HYDROXYCHLOROQUINE SULFATE
  2. PREDNISONE. [Concomitant]
     Active Substance: PREDNISONE
  3. TOPROL XL [Concomitant]
     Active Substance: METOPROLOL SUCCINATE
  4. LETAIRIS [Suspect]
     Active Substance: AMBRISENTAN
     Indication: PULMONARY ARTERIAL HYPERTENSION
     Route: 048
     Dates: start: 20100422
  5. ZOCOR [Concomitant]
     Active Substance: SIMVASTATIN
  6. LASIX [Concomitant]
     Active Substance: FUROSEMIDE
  7. KEPPRA [Concomitant]
     Active Substance: LEVETIRACETAM
  8. WARFARIN [Concomitant]
     Active Substance: WARFARIN
  9. IMURAN [Concomitant]
     Active Substance: AZATHIOPRINE
  10. COZAAR [Concomitant]
     Active Substance: LOSARTAN POTASSIUM
  11. DIGOXIN. [Concomitant]
     Active Substance: DIGOXIN

REACTIONS (1)
  - Migraine [Unknown]
